FAERS Safety Report 8473689-8 (Version None)
Quarter: 2012Q2

REPORT INFORMATION
  Report Type: 
  Country: None (occurrence: None)
  Receive Date: 20120628
  Receipt Date: 20111012
  Transmission Date: 20120825
  Serious: Yes (Other)
  Sender: FDA-Public Use
  Company Number: US-MYLANLABS-2011S1018499

PATIENT
  Age: 65 Year
  Sex: Male

DRUGS (6)
  1. CLOZAPINE [Suspect]
     Route: 048
     Dates: end: 20110901
  2. COGENTIN [Concomitant]
  3. CLOZAPINE [Suspect]
     Route: 048
  4. PERCOCET [Concomitant]
     Dosage: 5/325MG
  5. ULTRAM [Concomitant]
     Dosage: TID PRN
  6. ZOCOR [Concomitant]

REACTIONS (2)
  - LEUKOPENIA [None]
  - GRANULOCYTOPENIA [None]
